FAERS Safety Report 19208451 (Version 1)
Quarter: 2021Q2

REPORT INFORMATION
  Report Type: Report from Study
  Country: None (occurrence: US)
  Receive Date: 20210504
  Receipt Date: 20210504
  Transmission Date: 20210717
  Serious: Yes (Other)
  Sender: FDA-Public Use
  Company Number: US-ABBVIE-21K-163-3873526-00

PATIENT
  Sex: Female
  Weight: 122.58 kg

DRUGS (1)
  1. HUMIRA [Suspect]
     Active Substance: ADALIMUMAB
     Indication: HIDRADENITIS
     Route: 058
     Dates: start: 202004

REACTIONS (3)
  - Cyst [Not Recovered/Not Resolved]
  - Hidradenitis [Not Recovered/Not Resolved]
  - Adhesion [Unknown]
